FAERS Safety Report 7542799-1 (Version None)
Quarter: 2011Q2

REPORT INFORMATION
  Report Type: 
  Country: None (occurrence: None)
  Receive Date: 20110613
  Receipt Date: 20110602
  Transmission Date: 20111010
  Serious: Yes (Other)
  Sender: FDA-Public Use
  Company Number: US-RB-025881-11

PATIENT
  Age: 53 Year
  Sex: Female

DRUGS (3)
  1. DELSYM [Suspect]
     Route: 048
  2. XANAX [Concomitant]
  3. LIPITOR [Concomitant]

REACTIONS (8)
  - FEELING OF BODY TEMPERATURE CHANGE [None]
  - CONTUSION [None]
  - HYPERHIDROSIS [None]
  - SYNCOPE [None]
  - DIZZINESS [None]
  - NERVOUSNESS [None]
  - TREMOR [None]
  - PARAESTHESIA [None]
